FAERS Safety Report 6718692-0 (Version None)
Quarter: 2010Q2

REPORT INFORMATION
  Report Type: 
  Country: None (occurrence: None)
  Receive Date: 20100506
  Receipt Date: 20100424
  Transmission Date: 20101027
  Serious: Yes (Death, Hospitalization)
  Sender: FDA-Public Use
  Company Number: 2010AP000871

PATIENT
  Age: 49 Year
  Sex: Female

DRUGS (2)
  1. METFORMIN HCL [Suspect]
     Dosage: PO
     Route: 048
  2. LISINOPRIL AND HYDROCHLOROTHIAZIDE [Suspect]
     Dosage: PO
     Route: 048

REACTIONS (12)
  - BLOOD PRESSURE SYSTOLIC INCREASED [None]
  - CONDITION AGGRAVATED [None]
  - CONTINUOUS HAEMODIAFILTRATION [None]
  - DIARRHOEA [None]
  - ELECTROMECHANICAL DISSOCIATION [None]
  - HYPERGLYCAEMIA [None]
  - HYPOTENSION [None]
  - INTENTIONAL OVERDOSE [None]
  - LACTIC ACIDOSIS [None]
  - RENAL FAILURE ACUTE [None]
  - TACHYCARDIA [None]
  - TACHYPNOEA [None]
